FAERS Safety Report 4409449-4 (Version None)
Quarter: 2004Q3

REPORT INFORMATION
  Report Type: 
  Country: None (occurrence: None)
  Receive Date: 20040723
  Receipt Date: 20040708
  Transmission Date: 20050211
  Serious: Yes (Hospitalization)
  Sender: FDA-Public Use
  Company Number: 702130

PATIENT
  Age: 57 Year
  Sex: Male

DRUGS (1)
  1. AMEVIVE [Suspect]
     Dosage: 15 MG QW IM
     Route: 030
     Dates: start: 20031006

REACTIONS (7)
  - ARTHRITIS INFECTIVE [None]
  - CD4 LYMPHOCYTES DECREASED [None]
  - HERPES ZOSTER [None]
  - INFLAMMATION [None]
  - LIVER DISORDER [None]
  - MYCOBACTERIUM AVIUM COMPLEX INFECTION [None]
  - THERAPY NON-RESPONDER [None]
